FAERS Safety Report 20823760 (Version 1)
Quarter: 2022Q2

REPORT INFORMATION
  Report Type: Spontaneous
  Country: US (occurrence: US)
  Receive Date: 20220513
  Receipt Date: 20220513
  Transmission Date: 20220721
  Serious: No
  Sender: FDA-Public Use
  Company Number: US-TEVA-2022-US-2028429

PATIENT
  Age: 77 Year
  Sex: Female

DRUGS (1)
  1. METOPROLOL SUCCINATE [Suspect]
     Active Substance: METOPROLOL SUCCINATE
     Route: 065

REACTIONS (6)
  - Pruritus [Unknown]
  - Swelling face [Unknown]
  - Oropharyngeal discomfort [Unknown]
  - Lip swelling [Unknown]
  - Feeling abnormal [Unknown]
  - Adverse event [Unknown]
